FAERS Safety Report 9458154 (Version 11)
Quarter: 2014Q2

REPORT INFORMATION
  Report Type: Spontaneous
  Country: US (occurrence: US)
  Receive Date: 20130814
  Receipt Date: 20140404
  Transmission Date: 20141212
  Serious: Yes (Death, Hospitalization)
  Sender: FDA-Public Use
  Company Number: US-PFIZER INC-2013232245

PATIENT
  Age: 63 Year
  Sex: Female
  Weight: 83.45 kg

DRUGS (18)
  1. SUTENT [Suspect]
     Indication: METASTATIC RENAL CELL CARCINOMA
     Dosage: 50 MG, DAILY
     Route: 048
     Dates: start: 20130624, end: 2013
  2. SUTENT [Suspect]
     Dosage: 50 MG, EVERY OTHER DAY
     Dates: start: 2013, end: 2013
  3. SUTENT [Suspect]
     Dosage: 37.5 MG, CYCLIC (12.5 MG CAPSULES X 3) ONCE DAILY, CYCLIC (4 WEEKS ON 2 WEEKS OFF)
     Route: 048
     Dates: start: 201308, end: 20131007
  4. SUTENT [Suspect]
     Dosage: 37.5 MG, CYCLIC, DAILY FOR 4 WEEKS ON 2 WEEKS OFF
     Dates: start: 20131112, end: 20140224
  5. PEPTO-BISMOL [Suspect]
     Indication: GASTROINTESTINAL MOTILITY DISORDER
     Dosage: UNK
  6. MINERAL OIL [Suspect]
     Indication: GASTROINTESTINAL MOTILITY DISORDER
     Dosage: UNK
  7. LANTUS [Concomitant]
     Dosage: UNK
  8. NOVOLOG [Concomitant]
     Dosage: UNK
  9. METFORMIN [Concomitant]
     Dosage: UNK
  10. ZOFRAN [Concomitant]
     Dosage: UNK
  11. MORPHINE [Concomitant]
     Dosage: UNK
  12. MIRALAX [Concomitant]
     Indication: GASTROINTESTINAL MOTILITY DISORDER
     Dosage: UNK
  13. DULCOLAX STOOL SOFTENER [Concomitant]
     Indication: FAECES HARD
     Dosage: UNK
  14. DULCOLAX STOOL SOFTENER [Concomitant]
     Indication: GASTROINTESTINAL MOTILITY DISORDER
  15. NIFEDIPINE [Concomitant]
     Dosage: UNK
  16. CRESTOR [Concomitant]
     Dosage: UNK
  17. VERAPAMIL [Concomitant]
     Dosage: UNK
  18. TRILIPIX [Concomitant]
     Dosage: UNK

REACTIONS (19)
  - Disease progression [Fatal]
  - Metastatic renal cell carcinoma [Fatal]
  - Fracture [Unknown]
  - Drug intolerance [Unknown]
  - Vomiting [Recovered/Resolved]
  - Feeling abnormal [Unknown]
  - Oropharyngeal pain [Unknown]
  - Vomiting [Unknown]
  - Choking sensation [Unknown]
  - Alopecia [Unknown]
  - Blood glucose decreased [Unknown]
  - Diarrhoea [Unknown]
  - Decubitus ulcer [Unknown]
  - Abdominal discomfort [Unknown]
  - Flatulence [Unknown]
  - Stomatitis [Unknown]
  - Hiccups [Unknown]
  - Emotional disorder [Unknown]
  - Anxiety [Unknown]
